FAERS Safety Report 24221828 (Version 2)
Quarter: 2024Q3

REPORT INFORMATION
  Report Type: Report from Study
  Country: US (occurrence: US)
  Receive Date: 20240819
  Receipt Date: 20240827
  Transmission Date: 20241017
  Serious: Yes (Hospitalization, Other)
  Sender: GILEAD
  Company Number: US-GILEAD-2024-0684231

PATIENT
  Sex: Female

DRUGS (1)
  1. AMBRISENTAN [Suspect]
     Active Substance: AMBRISENTAN
     Indication: Product used for unknown indication
     Dosage: 5 MG
     Route: 065
     Dates: start: 20240215

REACTIONS (13)
  - Blindness unilateral [Unknown]
  - Insomnia [Unknown]
  - Coordination abnormal [Unknown]
  - Sinus disorder [Unknown]
  - Blood sodium decreased [Unknown]
  - Illness [Unknown]
  - Hallucination [Unknown]
  - Kidney infection [Unknown]
  - Dehydration [Unknown]
  - Disorientation [Unknown]
  - Confusional state [Unknown]
  - Peripheral swelling [Unknown]
  - Anxiety [Unknown]
